FAERS Safety Report 17011530 (Version 3)
Quarter: 2020Q1

REPORT INFORMATION
  Report Type: Spontaneous
  Country: JP (occurrence: JP)
  Receive Date: 20191108
  Receipt Date: 20200115
  Transmission Date: 20200409
  Serious: Yes (Hospitalization)
  Sender: FDA-Public Use
  Company Number: JP-JNJFOC-20170613392

PATIENT
  Age: 76 Year
  Sex: Male
  Weight: 83 kg

DRUGS (22)
  1. GASMET [Concomitant]
     Active Substance: FAMOTIDINE
     Route: 048
     Dates: start: 20130812
  2. ARTIST [Concomitant]
     Active Substance: CARVEDILOL
     Dosage: BEFORE ADMINISTRATION OF CANAGLIFLOZIN
     Route: 048
  3. WARFARIN [Concomitant]
     Active Substance: WARFARIN
     Dosage: BEFORE THE ADMINISTRATION OF CANAGLIFLOZIN
     Route: 048
     Dates: end: 20180315
  4. CANAGLIFLOZIN [Suspect]
     Active Substance: CANAGLIFLOZIN
     Route: 048
     Dates: start: 20181202
  5. FEBURIC [Concomitant]
     Active Substance: FEBUXOSTAT
     Route: 048
     Dates: start: 20140124
  6. VERAPAMIL HYDROCHLORIDE. [Concomitant]
     Active Substance: VERAPAMIL HYDROCHLORIDE
     Route: 048
     Dates: start: 20170209
  7. WARFARIN [Concomitant]
     Active Substance: WARFARIN
     Route: 048
     Dates: start: 20190204
  8. JANUVIA [Concomitant]
     Active Substance: SITAGLIPTIN PHOSPHATE
     Route: 048
     Dates: start: 20160920, end: 20170208
  9. CANAGLIFLOZIN [Suspect]
     Active Substance: CANAGLIFLOZIN
     Indication: TYPE 2 DIABETES MELLITUS
     Route: 048
     Dates: start: 20160920, end: 20181113
  10. JANUVIA [Concomitant]
     Active Substance: SITAGLIPTIN PHOSPHATE
     Indication: TYPE 2 DIABETES MELLITUS
     Route: 048
  11. WARFARIN [Concomitant]
     Active Substance: WARFARIN
     Route: 048
     Dates: start: 20190316
  12. LASIX [Concomitant]
     Active Substance: FUROSEMIDE
     Route: 048
     Dates: start: 20160920
  13. JANUVIA [Concomitant]
     Active Substance: SITAGLIPTIN PHOSPHATE
     Route: 048
     Dates: start: 20170209
  14. ALDACTONE A [Concomitant]
     Active Substance: SPIRONOLACTONE
     Dosage: BEFORE THE ADMINISTRATION OF CANAGLIFLOZIN
     Route: 048
  15. WARFARIN [Concomitant]
     Active Substance: WARFARIN
     Route: 048
     Dates: start: 20181114, end: 20190204
  16. JANUVIA [Concomitant]
     Active Substance: SITAGLIPTIN PHOSPHATE
     Route: 048
     Dates: start: 20170209, end: 20181113
  17. JANUVIA [Concomitant]
     Active Substance: SITAGLIPTIN PHOSPHATE
     Route: 048
     Dates: start: 20181202
  18. LIVALO [Concomitant]
     Active Substance: PITAVASTATIN CALCIUM
     Dosage: BEFORE THE ADMINISTRATION OF CANAGLIFLOZIN
     Route: 048
  19. VERAPAMIL HYDROCHLORIDE. [Concomitant]
     Active Substance: VERAPAMIL HYDROCHLORIDE
     Dosage: BEFORE THE ADMINISTRATION OF CANAGLIFLOZIN
     Route: 048
     Dates: end: 20170208
  20. WARFARIN [Concomitant]
     Active Substance: WARFARIN
     Route: 048
     Dates: start: 20190205, end: 20190315
  21. INSULIN [Concomitant]
     Active Substance: INSULIN NOS
     Route: 065
  22. WARFARIN [Concomitant]
     Active Substance: WARFARIN
     Route: 048
     Dates: start: 20180316, end: 20181106

REACTIONS (5)
  - Lumbar spinal stenosis [Recovered/Resolved]
  - Constipation [Not Recovered/Not Resolved]
  - Blood pressure increased [Recovered/Resolved]
  - Blood ketone body increased [Recovered/Resolved]
  - Albumin urine present [Recovered/Resolved]

NARRATIVE: CASE EVENT DATE: 20170208
